FAERS Safety Report 8920576 (Version 2)
Quarter: 2012Q4

REPORT INFORMATION
  Report Type: Report from Study
  Country: JP (occurrence: JP)
  Receive Date: 20121121
  Receipt Date: 20121220
  Transmission Date: 20130627
  Serious: Yes (Other)
  Sender: FDA-Public Use
  Company Number: JP-CELGENEUS-087-21880-10091773

PATIENT
  Age: 63 Year
  Sex: Male
  Weight: 65.4 kg

DRUGS (9)
  1. REVLIMID [Suspect]
     Indication: MULTIPLE MYELOMA
     Dosage: 20 Milligram
     Route: 048
     Dates: start: 20100826, end: 20100905
  2. REVLIMID [Suspect]
     Dosage: 25 Milligram
     Route: 048
     Dates: start: 20101004, end: 20101007
  3. REVLIMID [Suspect]
     Dosage: 10 Milligram
     Route: 048
     Dates: start: 20101008, end: 20101024
  4. REVLIMID [Suspect]
     Dosage: 15 Milligram
     Route: 048
     Dates: start: 20101104, end: 20101124
  5. LENADEX [Suspect]
     Indication: MULTIPLE MYELOMA
     Dosage: 20 Milligram
     Route: 048
     Dates: start: 20100826, end: 20100914
  6. LENADEX [Suspect]
     Dosage: 20 Milligram
     Route: 048
     Dates: start: 20101004, end: 20101022
  7. LENADEX [Suspect]
     Dosage: 20 Milligram
     Route: 048
     Dates: start: 20101104, end: 20101122
  8. BAYASPIRIN [Concomitant]
     Indication: PROPHYLAXIS
     Dosage: 100 Milligram
     Route: 048
     Dates: start: 20100826, end: 20101201
  9. OMEPRAZOLE [Concomitant]
     Indication: GASTRIC ULCER
     Dosage: 10 Milligram
     Route: 048
     Dates: start: 20100826, end: 20101201

REACTIONS (7)
  - Tetany [Recovering/Resolving]
  - Renal failure [Recovering/Resolving]
  - Dysphonia [Recovering/Resolving]
  - Pyrexia [Unknown]
  - Constipation [Recovered/Resolved]
  - Neuropathy peripheral [Recovering/Resolving]
  - Pyrexia [Recovering/Resolving]
